FAERS Safety Report 10037623 (Version 2)
Quarter: 2015Q1

REPORT INFORMATION
  Report Type: Spontaneous
  Country: US (occurrence: None)
  Receive Date: 20140324
  Receipt Date: 20150302
  Transmission Date: 20150720
  Serious: Yes (Hospitalization, Other)
  Sender: FDA-Public Use
  Company Number: UTC-045961

PATIENT
  Age: 45 Year
  Sex: Female
  Weight: 78.92 kg

DRUGS (2)
  1. REVATIO (SILDENAFIL CITRATE) [Concomitant]
  2. REMODULIN [Suspect]
     Active Substance: TREPROSTINIL
     Indication: COR PULMONALE CHRONIC
     Dosage: 34.92 UG/KG (0.02425 UG/KG, 1 IN 1 MIN), SUBCUTANEOUS
     Route: 058
     Dates: start: 20130917

REACTIONS (3)
  - Rash [None]
  - Chest pain [None]
  - Cellulitis [None]

NARRATIVE: CASE EVENT DATE: 2014
